FAERS Safety Report 25823529 (Version 1)
Quarter: 2025Q3

REPORT INFORMATION
  Report Type: Spontaneous
  Country: CN (occurrence: CN)
  Receive Date: 20250919
  Receipt Date: 20250919
  Transmission Date: 20251020
  Serious: Yes (Other)
  Sender: BRISTOL-MYERS SQUIBB COMPANY
  Company Number: CN-BRISTOL-MYERS SQUIBB COMPANY-2025-127849

PATIENT
  Age: 71 Year
  Sex: Male

DRUGS (2)
  1. CAMZYOS [Suspect]
     Active Substance: MAVACAMTEN
     Indication: Hypertrophic cardiomyopathy
     Dates: start: 202412
  2. CAMZYOS [Suspect]
     Active Substance: MAVACAMTEN
     Dosage: STRENGTH-5 MG
     Dates: start: 2025

REACTIONS (3)
  - Cardiac dysfunction [Unknown]
  - Cardiac septal hypertrophy [Unknown]
  - Off label use [Unknown]

NARRATIVE: CASE EVENT DATE: 20240101
